FAERS Safety Report 25659924 (Version 1)
Quarter: 2025Q3

REPORT INFORMATION
  Report Type: Spontaneous
  Country: US (occurrence: US)
  Receive Date: 20250808
  Receipt Date: 20250808
  Transmission Date: 20251020
  Serious: Yes (Other)
  Sender: UCB
  Company Number: US-UCBSA-2025048066

PATIENT
  Sex: Female

DRUGS (4)
  1. BIMZELX [Suspect]
     Active Substance: BIMEKIZUMAB-BKZX
     Indication: Ankylosing spondylitis
     Dosage: 160 MILLIGRAM, EV 4 WEEKS
     Route: 058
     Dates: start: 202504
  2. HYDROXYZINE [Suspect]
     Active Substance: HYDROXYZINE HYDROCHLORIDE
     Indication: Product used for unknown indication
  3. TRIAMCINOLONE [Suspect]
     Active Substance: TRIAMCINOLONE
     Indication: Product used for unknown indication
  4. BILASTINE [Suspect]
     Active Substance: BILASTINE
     Indication: Product used for unknown indication

REACTIONS (6)
  - Ankylosing spondylitis [Unknown]
  - Lip pain [Unknown]
  - Lip swelling [Unknown]
  - Skin discolouration [Unknown]
  - Blister [Unknown]
  - Discomfort [Unknown]

NARRATIVE: CASE EVENT DATE: 20250101
